FAERS Safety Report 15906207 (Version 7)
Quarter: 2019Q3

REPORT INFORMATION
  Report Type: Spontaneous
  Country: US (occurrence: US)
  Receive Date: 20190204
  Receipt Date: 20190822
  Transmission Date: 20191004
  Serious: Yes (Other)
  Sender: FDA-Public Use
  Company Number: US-PFIZER INC-2019051429

PATIENT
  Age: 77 Year
  Sex: Female

DRUGS (1)
  1. IBRANCE [Suspect]
     Active Substance: PALBOCICLIB
     Indication: BREAST CANCER FEMALE
     Dosage: 125 MG, CYCLIC (ONCE A DAY FOR 3 WEEK THEN 1 WEEK OFF )
     Dates: start: 20181217

REACTIONS (4)
  - Fatigue [Unknown]
  - Stomatitis [Recovered/Resolved]
  - Blindness [Not Recovered/Not Resolved]
  - Feeling abnormal [Unknown]
